FAERS Safety Report 20111017 (Version 5)
Quarter: 2021Q4

REPORT INFORMATION
  Report Type: Report from Study
  Country: CO (occurrence: CO)
  Receive Date: 20211125
  Receipt Date: 20211206
  Transmission Date: 20220303
  Serious: Yes (Death, Hospitalization)
  Sender: FDA-Public Use
  Company Number: CO-ABBVIE-21K-036-4173753-00

PATIENT
  Sex: Male

DRUGS (1)
  1. VENCLEXTA [Suspect]
     Active Substance: VENETOCLAX
     Indication: Acute myeloid leukaemia
     Route: 048
     Dates: start: 20211105, end: 20211119

REACTIONS (7)
  - Death [Fatal]
  - Spinal fracture [Unknown]
  - Decreased appetite [Unknown]
  - Fall [Unknown]
  - Illness [Not Recovered/Not Resolved]
  - Dizziness [Unknown]
  - Jaundice [Unknown]

NARRATIVE: CASE EVENT DATE: 20210101
